FAERS Safety Report 4693783-7 (Version None)
Quarter: 2005Q2

REPORT INFORMATION
  Report Type: 
  Country: None (occurrence: None)
  Receive Date: 20050616
  Receipt Date: 20050530
  Transmission Date: 20051028
  Serious: Yes (Death)
  Sender: FDA-Public Use
  Company Number: 200504561

PATIENT
  Age: 69 Year
  Sex: Male
  Weight: 99.7913 kg

DRUGS (5)
  1. ZYMAR [Suspect]
     Indication: PROPHYLAXIS
     Dosage: 2 DROP QD EYE
     Dates: start: 20050507, end: 20050507
  2. AMLOVASC [Concomitant]
  3. DAONIL [Concomitant]
  4. INSULIN [Concomitant]
  5. TEUTOFORMIN [Concomitant]

REACTIONS (8)
  - ACUTE MYOCARDIAL INFARCTION [None]
  - CARDIAC DISORDER [None]
  - CARDIAC FAILURE [None]
  - HYPERSENSITIVITY [None]
  - HYPERTENSION [None]
  - PALPITATIONS [None]
  - PULMONARY OEDEMA [None]
  - RESPIRATORY DISORDER [None]
